FAERS Safety Report 7872291-6 (Version None)
Quarter: 2011Q4

REPORT INFORMATION
  Report Type: 
  Country: None (occurrence: None)
  Receive Date: 20111030
  Receipt Date: 20110317
  Transmission Date: 20120403
  Serious: No
  Sender: FDA-Public Use
  Company Number: US-AMGEN-USASP2011014832

PATIENT
  Age: 29 Year
  Sex: Female

DRUGS (1)
  1. ENBREL [Suspect]
     Indication: RHEUMATOID ARTHRITIS
     Dates: start: 20110310

REACTIONS (5)
  - BREAST TENDERNESS [None]
  - HEADACHE [None]
  - PAIN [None]
  - VAGINAL DISCHARGE [None]
  - NAUSEA [None]
